FAERS Safety Report 8271656 (Version 2)
Quarter: 2012Q4

REPORT INFORMATION
  Report Type: 
  Country: US (occurrence: US)
  Receive Date: 20111201
  Receipt Date: 20120912
  Transmission Date: 20130627
  Serious: Yes (Other)
  Sender: FDA-Public Use
  Company Number: US-ROCHE-788973

PATIENT
  Age: 17 Year
  Sex: Female
  Weight: 61.29 kg

DRUGS (2)
  1. ACCUTANE [Suspect]
     Indication: ACNE
     Route: 048
     Dates: start: 19981208, end: 199905
  2. ORTHO TRI CYCLEN [Concomitant]

REACTIONS (8)
  - Colitis ulcerative [Unknown]
  - Inflammatory bowel disease [Unknown]
  - Emotional distress [Unknown]
  - Anxiety [Unknown]
  - Mental disorder [Unknown]
  - Depression [Unknown]
  - Lip dry [Unknown]
  - Dry skin [Unknown]
